FAERS Safety Report 6832428-4 (Version None)
Quarter: 2010Q3

REPORT INFORMATION
  Report Type: 
  Country: None (occurrence: None)
  Receive Date: 20100712
  Receipt Date: 20070309
  Transmission Date: 20110219
  Serious: No
  Sender: FDA-Public Use
  Company Number: US-PFIZER INC-2007020262

PATIENT
  Sex: Male
  Weight: 83.91 kg

DRUGS (5)
  1. CHANTIX [Suspect]
     Indication: SMOKING CESSATION THERAPY
     Dates: start: 20070302
  2. TRUVADA [Concomitant]
  3. FOSAMPRENAVIR [Concomitant]
  4. NORVIR [Concomitant]
  5. TRAMADOL [Concomitant]

REACTIONS (2)
  - ANAL PRURITUS [None]
  - ANORECTAL DISCOMFORT [None]
